FAERS Safety Report 16536526 (Version 3)
Quarter: 2019Q4

REPORT INFORMATION
  Report Type: Spontaneous
  Country: DE (occurrence: DE)
  Receive Date: 20190706
  Receipt Date: 20191104
  Transmission Date: 20200122
  Serious: Yes (Hospitalization)
  Sender: FDA-Public Use
  Company Number: DE-AUROBINDO-AUR-APL-2019-038243

PATIENT
  Age: 57 Year
  Sex: Male

DRUGS (20)
  1. TRIMIPRAMINE [Concomitant]
     Active Substance: TRIMIPRAMINE
     Indication: ANTIDEPRESSANT THERAPY
     Dosage: 50 MILLIGRAM
     Route: 065
  2. DULOXETINE HYDROCHLORIDE. [Concomitant]
     Active Substance: DULOXETINE HYDROCHLORIDE
     Indication: PRODUCT USED FOR UNKNOWN INDICATION
     Dosage: 120 MILLIGRAM
     Route: 065
  3. DULOXETINE. [Concomitant]
     Active Substance: DULOXETINE
     Indication: ANTIDEPRESSANT THERAPY
     Dosage: 90 MILLIGRAM
     Route: 065
  4. MELPERON [Concomitant]
     Active Substance: MELPERONE
     Dosage: 50 MILLIGRAM, 3 TIMES A DAY
     Route: 065
  5. TRAZODONE HYDROCHLORIDE. [Concomitant]
     Active Substance: TRAZODONE HYDROCHLORIDE
     Indication: PRODUCT USED FOR UNKNOWN INDICATION
     Dosage: 200 MILLIGRAM
     Route: 065
  6. MELPERON [Concomitant]
     Active Substance: MELPERONE
     Dosage: (3 X 25 MG PLUS 1 X 25 MG)
     Route: 065
  7. TRANYLCYPROMINE [Concomitant]
     Active Substance: TRANYLCYPROMINE
     Indication: ANTIDEPRESSANT THERAPY
     Dosage: 20 MILLIGRAM
     Route: 065
  8. DULOXETINE. [Concomitant]
     Active Substance: DULOXETINE
     Dosage: 120 MILLIGRAM
     Route: 065
  9. QUETIAPINE. [Concomitant]
     Active Substance: QUETIAPINE
     Indication: ANTIDEPRESSANT THERAPY
     Dosage: 25 MILLIGRAM
     Route: 065
  10. DULOXETINE HYDROCHLORIDE. [Concomitant]
     Active Substance: DULOXETINE HYDROCHLORIDE
     Dosage: 90 MILLIGRAM
     Route: 065
  11. MIRTAZAPINE FILM-COATED TABLET [Suspect]
     Active Substance: MIRTAZAPINE
     Indication: DEPRESSION
     Dosage: 15 MILLIGRAM
     Route: 048
  12. TRAZODON [Concomitant]
     Active Substance: TRAZODONE HYDROCHLORIDE
     Dosage: 200 MILLIGRAM
     Route: 065
  13. TRAZODON [Concomitant]
     Active Substance: TRAZODONE HYDROCHLORIDE
     Dosage: 100 MILLIGRAM
     Route: 065
  14. TRAZODONE HYDROCHLORIDE. [Concomitant]
     Active Substance: TRAZODONE HYDROCHLORIDE
     Dosage: 50 MILLIGRAM
     Route: 065
  15. TRAZODONE HYDROCHLORIDE. [Concomitant]
     Active Substance: TRAZODONE HYDROCHLORIDE
     Dosage: 100 MILLIGRAM
     Route: 065
  16. MIRTAZAPINE FILM-COATED TABLET [Suspect]
     Active Substance: MIRTAZAPINE
     Dosage: 45 MILLIGRAM
     Route: 048
  17. TRAZODON [Concomitant]
     Active Substance: TRAZODONE HYDROCHLORIDE
     Dosage: 50 MILLIGRAM
     Route: 065
  18. TRAZODON [Concomitant]
     Active Substance: TRAZODONE HYDROCHLORIDE
     Indication: ANTIDEPRESSANT THERAPY
     Dosage: 100 MILLIGRAM
     Route: 065
  19. MILNACIPRAN [Concomitant]
     Active Substance: MILNACIPRAN
     Indication: ANTIDEPRESSANT THERAPY
     Dosage: 50 MILLIGRAM, TWO TIMES A DAY
     Route: 065
  20. MELPERON [Concomitant]
     Active Substance: MELPERONE
     Indication: ANTIDEPRESSANT THERAPY
     Dosage: 50 MILLIGRAM, TWO TIMES A DAY
     Route: 065

REACTIONS (6)
  - Alcoholism [Recovered/Resolved]
  - Nightmare [Recovered/Resolved]
  - Hyperhidrosis [Unknown]
  - Depression [Recovered/Resolved]
  - Anxiety [Unknown]
  - Drug ineffective [Unknown]
